FAERS Safety Report 12309976 (Version 1)
Quarter: 2016Q2

REPORT INFORMATION
  Report Type: Spontaneous
  Country: JP (occurrence: JP)
  Receive Date: 20160427
  Receipt Date: 20160427
  Transmission Date: 20160815
  Serious: Yes (Death, Hospitalization, Other)
  Sender: FDA-Public Use
  Company Number: JP-SUN PHARMACEUTICAL INDUSTRIES LTD-2016RR-115550

PATIENT
  Age: 76 Year
  Sex: Male

DRUGS (6)
  1. AMPHOTERICIN B. [Suspect]
     Active Substance: AMPHOTERICIN B
     Indication: BRAIN ABSCESS
     Dosage: UNK
     Route: 042
  2. MICONAZOLE. [Suspect]
     Active Substance: MICONAZOLE
     Indication: FUNGAL INFECTION
  3. FLUCONAZOLE. [Suspect]
     Active Substance: FLUCONAZOLE
     Indication: BRAIN ABSCESS
     Dosage: UNK
     Route: 042
  4. MICONAZOLE. [Suspect]
     Active Substance: MICONAZOLE
     Indication: BRAIN ABSCESS
     Dosage: UNK
     Route: 050
  5. FLUCONAZOLE. [Suspect]
     Active Substance: FLUCONAZOLE
     Indication: FUNGAL INFECTION
  6. AMPHOTERICIN B. [Suspect]
     Active Substance: AMPHOTERICIN B
     Indication: FUNGAL INFECTION

REACTIONS (2)
  - Drug ineffective [Fatal]
  - Condition aggravated [Fatal]
